FAERS Safety Report 21438897 (Version 1)
Quarter: 2022Q4

REPORT INFORMATION
  Report Type: Spontaneous
  Country: US (occurrence: None)
  Receive Date: 20221007
  Receipt Date: 20221007
  Transmission Date: 20230113
  Serious: Yes (Other)
  Sender: FDA-Public Use
  Company Number: None

PATIENT
  Age: 61 Year
  Sex: Female

DRUGS (1)
  1. MAYZENT [Suspect]
     Active Substance: SIPONIMOD
     Dosage: FREQUENCY : DAILY;?
     Route: 048
     Dates: start: 2021

REACTIONS (5)
  - Laboratory test abnormal [None]
  - White blood cell count decreased [None]
  - Hepatic enzyme increased [None]
  - Squamous cell carcinoma [None]
  - Multiple sclerosis [None]

NARRATIVE: CASE EVENT DATE: 20211101
